FAERS Safety Report 4700801-6 (Version None)
Quarter: 2005Q2

REPORT INFORMATION
  Report Type: 
  Country: None (occurrence: None)
  Receive Date: 20050624
  Receipt Date: 20040505
  Transmission Date: 20051028
  Serious: Yes (Hospitalization)
  Sender: FDA-Public Use
  Company Number: 364616

PATIENT
  Age: 57 Year
  Sex: Female
  Weight: 78.5 kg

DRUGS (19)
  1. CAPECITABINE (CAPECITABINE) [Suspect]
     Indication: BREAST CANCER METASTATIC
     Dosage: INTRAVENOUS
     Route: 042
     Dates: end: 20040115
  2. HERCEPTIN [Suspect]
     Indication: BREAST CANCER METASTATIC
     Dosage: 150 MG 1 PER WEEK INTRAVENOUS
     Route: 042
     Dates: start: 20020815, end: 20040402
  3. GEMCITABINE (GEMCITABINE) [Suspect]
     Dates: start: 20020815
  4. DOCETAXEL (DOCETAXEL) [Concomitant]
  5. LETROZOLE (LETROZOLE) [Concomitant]
  6. ASPIRIN [Concomitant]
  7. TOPROL-XL [Concomitant]
  8. TYLENOL [Concomitant]
  9. VALTREX [Concomitant]
  10. DIGOXIN [Concomitant]
  11. K-DUR (POTASSUM CHLORIDE) [Concomitant]
  12. MONOPRIL [Concomitant]
  13. ACIPHEX [Concomitant]
  14. LEXAPRO [Concomitant]
  15. FLUCONAZOLE [Concomitant]
  16. VITAMIN B6 [Concomitant]
  17. VITAMIN E [Concomitant]
  18. CALCIUM (CALICUM NOS) [Concomitant]
  19. DEMADEX [Concomitant]

REACTIONS (3)
  - CARDIAC FAILURE CONGESTIVE [None]
  - CONDITION AGGRAVATED [None]
  - RASH [None]
